FAERS Safety Report 6198275-4 (Version None)
Quarter: 2009Q2

REPORT INFORMATION
  Report Type: 
  Country: None (occurrence: None)
  Receive Date: 20090521
  Receipt Date: 20090316
  Transmission Date: 20091009
  Serious: No
  Sender: FDA-Public Use
  Company Number: US-BAYER-200911120BCC

PATIENT
  Age: 2 Year
  Sex: Male

DRUGS (1)
  1. ALEVE [Suspect]
     Indication: ACCIDENTAL DRUG INTAKE BY CHILD
     Dosage: CHILD MAY HAVE INGESTED 6 TABLETS
     Route: 048

REACTIONS (1)
  - NO ADVERSE EVENT [None]
